FAERS Safety Report 13521141 (Version 6)
Quarter: 2018Q1

REPORT INFORMATION
  Report Type: Report from Study
  Country: DE (occurrence: DE)
  Receive Date: 20170508
  Receipt Date: 20180301
  Transmission Date: 20180508
  Serious: Yes (Other)
  Sender: FDA-Public Use
  Company Number: PHHY2017DE065785

PATIENT
  Age: 64 Year
  Sex: Female

DRUGS (6)
  1. SIGNIFOR [Suspect]
     Active Substance: PASIREOTIDE
     Dosage: DAILY DOSE: 1.2 MG MILLIGRAM(S) EVERY DAY
     Route: 058
     Dates: start: 20150724, end: 20161103
  2. INEGY [Concomitant]
     Active Substance: EZETIMIBE\SIMVASTATIN
     Indication: HYPERLIPIDAEMIA
     Dosage: 10/20 MG
     Route: 048
  3. SIGNIFOR [Suspect]
     Active Substance: PASIREOTIDE
     Indication: PITUITARY-DEPENDENT CUSHING^S SYNDROME
     Dosage: 0.3 MG, BID
     Route: 058
     Dates: start: 20140422, end: 20150723
  4. SIGNIFOR [Suspect]
     Active Substance: PASIREOTIDE
     Indication: CARCINOID TUMOUR
     Dosage: 0.6 MG, BID
     Route: 058
     Dates: start: 20150724, end: 20161103
  5. RAMIPRIL. [Concomitant]
     Active Substance: RAMIPRIL
     Indication: HYPERTENSION
     Dosage: 50 MG, UNK
     Route: 048
  6. METOPROLOL. [Concomitant]
     Active Substance: METOPROLOL
     Indication: HYPERTENSION
     Dosage: 10 MG, UNK
     Route: 048

REACTIONS (5)
  - Muscular weakness [Unknown]
  - Diabetes mellitus inadequate control [Unknown]
  - Glucocorticoid deficiency [Recovered/Resolved]
  - Nausea [Unknown]
  - Arthralgia [Unknown]

NARRATIVE: CASE EVENT DATE: 20160923
